FAERS Safety Report 5921775-6 (Version None)
Quarter: 2008Q4

REPORT INFORMATION
  Report Type: 
  Country: None (occurrence: None)
  Receive Date: 20081016
  Receipt Date: 20081016
  Transmission Date: 20090506
  Serious: Yes (Death)
  Sender: FDA-Public Use
  Company Number: None

PATIENT
  Age: 61 Year
  Sex: Male
  Weight: 46.8 kg

DRUGS (8)
  1. OXALIPLATIN [Suspect]
     Indication: SQUAMOUS CELL CARCINOMA
     Dosage: 202 MG ONCE IV
     Route: 042
     Dates: start: 20081002
  2. DOCETAXEL [Suspect]
     Indication: SQUAMOUS CELL CARCINOMA
     Dosage: 93 MG ONCE IV
     Route: 042
     Dates: start: 20081002
  3. CODEINE SUL TAB [Concomitant]
  4. CODEINE 30/ACETAMINOPHEN [Concomitant]
  5. LEVOTHYROXINE SODIUM [Concomitant]
  6. SODIUM FLOURIDE [Concomitant]
  7. OMEPRAZOLE [Concomitant]
  8. DOCETAXEL [Suspect]

REACTIONS (3)
  - ASPIRATION [None]
  - TRISMUS [None]
  - VOMITING [None]
